FAERS Safety Report 8183765-5 (Version None)
Quarter: 2012Q1

REPORT INFORMATION
  Report Type: 
  Country: None (occurrence: None)
  Receive Date: 20120305
  Receipt Date: 20120301
  Transmission Date: 20120608
  Serious: Yes (Death, Other)
  Sender: FDA-Public Use
  Company Number: PHHY2012JP015837

PATIENT
  Sex: Female
  Weight: 65 kg

DRUGS (38)
  1. CLOZARIL [Suspect]
     Dosage: 100 MG, DAILY
     Route: 048
     Dates: start: 20110724, end: 20110725
  2. MEDICON (DEXTROMETHORPHAN HYDROBROMIDE) [Concomitant]
     Indication: INFLUENZA
     Dosage: 3 DF, FOR 5 DAYS
     Route: 048
     Dates: start: 20120219
  3. TERBINAFINE HCL [Concomitant]
     Dosage: 2 MG, UNK
     Route: 048
  4. DORAL [Concomitant]
     Dosage: 15 MG, UNK
     Route: 048
  5. LEUCON [Concomitant]
     Dosage: 60 MG, UNK
     Route: 048
  6. LITHIUM CARBONATE [Concomitant]
     Dosage: 400 MG, UNK
     Route: 048
  7. CLOZARIL [Suspect]
     Dosage: 200 MG, DAILY
     Route: 048
     Dates: start: 20110804, end: 20110804
  8. CLOZARIL [Suspect]
     Dosage: 300 MG, DAILY
     Route: 048
     Dates: start: 20110805, end: 20110811
  9. BLADDERON [Concomitant]
     Dosage: 600 MG, UNK
     Route: 048
  10. LEVOTOMIN [Concomitant]
     Dosage: 50 MG, UNK
     Route: 048
     Dates: start: 20090301, end: 20110924
  11. CLOZARIL [Suspect]
     Dosage: 25 MG, DAILY
     Route: 048
     Dates: start: 20110709, end: 20110711
  12. CLOZARIL [Suspect]
     Dosage: 400 MG, DAILY
     Route: 048
     Dates: start: 20110819, end: 20110922
  13. CLOZARIL [Suspect]
     Dosage: 600 MG, DAILY
     Route: 048
     Dates: start: 20111202
  14. ACETAMINOPHEN [Concomitant]
     Indication: INFLUENZA
     Dosage: 400 MG, UNK
     Route: 048
     Dates: start: 20120219
  15. ZYPREXA [Concomitant]
     Dosage: 10 MG, UNK
     Route: 048
  16. RISPERDAL [Concomitant]
     Dosage: 8 MG, UNK
     Route: 048
     Dates: start: 20110824, end: 20110906
  17. ROHYPNOL [Concomitant]
     Dosage: 2 MG, UNK
     Route: 048
  18. ZYPREXA [Concomitant]
     Dosage: 20 MG, UNK
     Route: 048
     Dates: start: 20040924
  19. ZYPREXA [Concomitant]
     Dosage: 5 MG, UNK
     Route: 048
     Dates: end: 20110813
  20. SETOUS [Concomitant]
     Dosage: 75 MG, UNK
     Route: 048
     Dates: end: 20110910
  21. CLOZARIL [Suspect]
     Dosage: 75 MG, DAILY
     Route: 048
     Dates: start: 20110722, end: 20110723
  22. CLOZARIL [Suspect]
     Dosage: 125 MG, DAILY
     Route: 048
     Dates: start: 20110726, end: 20110728
  23. FERROUS SULFATE TAB [Concomitant]
     Dosage: 1 DF, UNK
     Route: 048
  24. SETOUS [Concomitant]
     Dosage: 300 MG, UNK
     Route: 048
     Dates: start: 20091214
  25. SETOUS [Concomitant]
     Dosage: 150 MG, UNK
     Route: 048
  26. CLOZARIL [Suspect]
     Indication: SCHIZOPHRENIA
     Dosage: 12.5 MG, DAILY
     Route: 048
     Dates: start: 20110708, end: 20110708
  27. CLOZARIL [Suspect]
     Dosage: 150 MG, DAILY
     Route: 048
     Dates: start: 20110729, end: 20110731
  28. SENNOSIDE [Concomitant]
     Indication: CONSTIPATION
     Dosage: 24 MG, UNK
     Route: 048
  29. TSUMURA DAI-KENCHU-TO [Concomitant]
     Indication: CONSTIPATION
     Dosage: 3 DF, UNK
     Route: 048
  30. FERROUS SULFATE TAB [Concomitant]
     Dosage: 105 MG, UNK
     Route: 048
  31. PAXIL [Concomitant]
     Dosage: 20 MG, UNK
     Route: 048
  32. LORAZEPAM [Concomitant]
     Dosage: 3 MG, UNK
     Route: 048
     Dates: start: 20091214, end: 20111102
  33. CLOZARIL [Suspect]
     Dosage: 50 MG, DAILY
     Route: 048
     Dates: start: 20110712, end: 20110721
  34. CLOZARIL [Suspect]
     Dosage: 175 MG, DAILY
     Route: 048
     Dates: start: 20110801, end: 20110803
  35. CLOZARIL [Suspect]
     Dosage: 325 MG, DAILY
     Route: 048
     Dates: start: 20110812, end: 20110818
  36. CLOZARIL [Suspect]
     Dosage: 500 MG, DAILY
     Route: 048
     Dates: start: 20110923, end: 20111201
  37. MAGNESIUM OXIDE [Concomitant]
     Indication: CONSTIPATION
     Dosage: 1500 MG, UNK
     Route: 048
  38. TSUMURA DAI-KENCHU-TO [Concomitant]
     Dosage: 7500 MG, UNK
     Route: 048

REACTIONS (17)
  - LYMPHOCYTE COUNT DECREASED [None]
  - CARDIO-RESPIRATORY ARREST [None]
  - VOMITING [None]
  - WHITE BLOOD CELL COUNT INCREASED [None]
  - GASTROINTESTINAL DISORDER [None]
  - ABDOMINAL DISTENSION [None]
  - ASPHYXIA [None]
  - ASPIRATION [None]
  - NEUTROPHIL COUNT INCREASED [None]
  - BLOOD GLUCOSE INCREASED [None]
  - PYREXIA [None]
  - INTESTINAL OBSTRUCTION [None]
  - HAEMOGLOBIN DECREASED [None]
  - RED BLOOD CELL COUNT DECREASED [None]
  - DIARRHOEA [None]
  - INFLUENZA A VIRUS TEST POSITIVE [None]
  - MYOCARDIAL INFARCTION [None]
